FAERS Safety Report 6099703-5 (Version None)
Quarter: 2009Q1

REPORT INFORMATION
  Report Type: 
  Country: None (occurrence: None)
  Receive Date: 20090303
  Receipt Date: 20090227
  Transmission Date: 20090719
  Serious: Yes (Other)
  Sender: FDA-Public Use
  Company Number: PT-BRISTOL-MYERS SQUIBB COMPANY-14505325

PATIENT
  Age: 48 Year
  Sex: Female

DRUGS (3)
  1. ABILIFY [Suspect]
     Route: 048
     Dates: start: 20090201, end: 20090201
  2. VENLAFAXINE HCL [Concomitant]
  3. LETTER [Concomitant]

REACTIONS (1)
  - PSYCHOTIC DISORDER [None]
